FAERS Safety Report 5122539-6 (Version None)
Quarter: 2006Q4

REPORT INFORMATION
  Report Type: 
  Country: None (occurrence: None)
  Receive Date: 20061009
  Receipt Date: 20060928
  Transmission Date: 20070319
  Serious: Yes (Other)
  Sender: FDA-Public Use
  Company Number: US-JNJFOC-20060705690

PATIENT
  Sex: Female
  Weight: 70.31 kg

DRUGS (13)
  1. REMICADE [Suspect]
     Indication: RHEUMATOID ARTHRITIS
     Dosage: 200 TO 500 MG EVERY 8 WEEKS
     Route: 042
  2. METHOTREXATE [Concomitant]
     Dosage: START DATE 25-FEB-04 OR EARLIER
  3. MEDROL [Concomitant]
  4. NEURONTIN [Concomitant]
  5. CALCIUM PLUS D [Concomitant]
  6. AMARYL [Concomitant]
  7. METFORMIN [Concomitant]
  8. FOLIC ACID [Concomitant]
  9. NEXIUM [Concomitant]
  10. AVANDIA [Concomitant]
  11. VITORIN [Concomitant]
  12. FOSAMAX [Concomitant]
  13. DARVOCET-N 100 [Concomitant]

REACTIONS (1)
  - VAGINAL CANCER [None]
